FAERS Safety Report 18288574 (Version 1)
Quarter: 2020Q3

REPORT INFORMATION
  Report Type: Spontaneous
  Country: US (occurrence: US)
  Receive Date: 20200921
  Receipt Date: 20200921
  Transmission Date: 20201103
  Serious: Yes (Disabling)
  Sender: FDA-Public Use
  Company Number: US-ELI_LILLY_AND_COMPANY-US202009004396

PATIENT
  Age: 70 Year
  Sex: Male

DRUGS (1)
  1. BASAGLAR [Suspect]
     Active Substance: INSULIN GLARGINE
     Indication: TYPE 2 DIABETES MELLITUS
     Dosage: 22 U, EACH EVENING (EVERY NIGHT)
     Route: 058

REACTIONS (3)
  - Road traffic accident [Recovering/Resolving]
  - Mobility decreased [Recovering/Resolving]
  - Radial nerve injury [Recovering/Resolving]

NARRATIVE: CASE EVENT DATE: 20190427
